FAERS Safety Report 9735528 (Version 1)
Quarter: 2013Q4

REPORT INFORMATION
  Report Type: Spontaneous
  Country: US (occurrence: US)
  Receive Date: 20131206
  Receipt Date: 20131206
  Transmission Date: 20140711
  Serious: No
  Sender: FDA-Public Use
  Company Number: US-GILEAD-2009-0023508

PATIENT
  Sex: Female
  Weight: 81.19 kg

DRUGS (7)
  1. LETAIRIS [Suspect]
     Indication: PULMONARY ARTERIAL HYPERTENSION
     Route: 048
     Dates: start: 20090325
  2. WARFARIN [Concomitant]
  3. OXYGEN [Concomitant]
  4. COMBIVENT [Concomitant]
  5. DUONEB [Concomitant]
  6. BUMETANIDE [Concomitant]
  7. POTASSIUM CHLORIDE [Concomitant]

REACTIONS (2)
  - Muscular weakness [Unknown]
  - No therapeutic response [Unknown]
